FAERS Safety Report 8670281 (Version 3)
Quarter: 2013Q1

REPORT INFORMATION
  Report Type: Spontaneous
  Country: US (occurrence: US)
  Receive Date: 20120718
  Receipt Date: 20130206
  Transmission Date: 20140127
  Serious: No
  Sender: FDA-Public Use
  Company Number: US-009507513-1207USA004414

PATIENT
  Sex: Female

DRUGS (5)
  1. VICTRELIS [Suspect]
     Indication: HEPATITIS C
     Dosage: 800 MG, TID
     Route: 048
     Dates: start: 20120515
  2. RIBASPHERE [Suspect]
  3. PEGINTRON [Suspect]
  4. NEUPOGEN [Concomitant]
  5. PROCRIT [Concomitant]

REACTIONS (5)
  - White blood cell disorder [Unknown]
  - Fatigue [Unknown]
  - Red blood cell abnormality [Unknown]
  - Fatigue [Unknown]
  - Depression [Unknown]
